FAERS Safety Report 8915790 (Version 1)
Quarter: 2012Q4

REPORT INFORMATION
  Report Type: 
  Country: BR (occurrence: BR)
  Receive Date: 20121119
  Receipt Date: 20121119
  Transmission Date: 20130627
  Serious: Yes (Other)
  Sender: FDA-Public Use
  Company Number: BR-ABBOTT-12P-020-1008948-00

PATIENT
  Sex: Female
  Weight: 73 kg

DRUGS (5)
  1. HUMIRA [Suspect]
     Indication: RHEUMATOID ARTHRITIS
     Dosage: no induction dose
     Route: 058
     Dates: start: 2006, end: 2011
  2. HUMIRA [Suspect]
     Dates: start: 201209
  3. UNKNOWN MEDICATIONS [Suspect]
     Indication: PRODUCT USED FOR UNKNOWN INDICATION
  4. CORTICOSTEROIDS [Suspect]
     Indication: PRODUCT USED FOR UNKNOWN INDICATION
  5. METHOTREXATE [Concomitant]
     Indication: RHEUMATOID ARTHRITIS
     Dosage: 7.5mg in AM and in PM, same day each week
     Route: 048
     Dates: start: 201207

REACTIONS (3)
  - Drug-induced liver injury [Recovering/Resolving]
  - Swelling [Unknown]
  - Pain [Recovering/Resolving]
